FAERS Safety Report 5242475-4 (Version None)
Quarter: 2007Q1

REPORT INFORMATION
  Report Type: 
  Country: None (occurrence: None)
  Receive Date: 20070214
  Receipt Date: 20070128
  Transmission Date: 20070707
  Serious: Yes (Hospitalization)
  Sender: FDA-Public Use
  Company Number: 2007SP001770

PATIENT
  Age: 54 Year
  Sex: Female

DRUGS (2)
  1. PEG-INTRON [Suspect]
     Indication: HEPATITIS C
     Dosage: SC
     Route: 058
     Dates: start: 20070101
  2. RIBAVIRIN [Suspect]
     Indication: HEPATITIS C
     Dosage: PO
     Route: 048
     Dates: start: 20070101

REACTIONS (12)
  - APPETITE DISORDER [None]
  - ASTHENIA [None]
  - BLOOD SODIUM DECREASED [None]
  - CHILLS [None]
  - DIZZINESS [None]
  - DYSURIA [None]
  - FEELING ABNORMAL [None]
  - HYPERHIDROSIS [None]
  - MICTURITION URGENCY [None]
  - NAUSEA [None]
  - THIRST [None]
  - TREMOR [None]
